FAERS Safety Report 6148712-6 (Version None)
Quarter: 2009Q2

REPORT INFORMATION
  Report Type: 
  Country: None (occurrence: None)
  Receive Date: 20090408
  Receipt Date: 20090330
  Transmission Date: 20091009
  Serious: Yes (Hospitalization)
  Sender: FDA-Public Use
  Company Number: CA-ABBOTT-09P-028-0565464-00

PATIENT
  Sex: Female
  Weight: 68.1 kg

DRUGS (9)
  1. HUMIRA [Suspect]
     Indication: RHEUMATOID ARTHRITIS
     Route: 058
     Dates: start: 20040506, end: 20090305
  2. VOLTAREN [Concomitant]
     Indication: DRUG USE FOR UNKNOWN INDICATION
  3. FOLIC ACID [Concomitant]
     Indication: DRUG USE FOR UNKNOWN INDICATION
  4. PLAQUENIL [Concomitant]
     Indication: DRUG USE FOR UNKNOWN INDICATION
  5. METHOTREXATE [Concomitant]
     Indication: DRUG USE FOR UNKNOWN INDICATION
  6. CALCIUM/VIT D [Concomitant]
     Indication: DRUG USE FOR UNKNOWN INDICATION
     Dosage: 500MG/400 IU 1 TAB BID
  7. AVALID [Concomitant]
     Indication: DRUG USE FOR UNKNOWN INDICATION
  8. NORVASC [Concomitant]
     Indication: DRUG USE FOR UNKNOWN INDICATION
  9. VENTOLIN [Concomitant]
     Indication: DRUG USE FOR UNKNOWN INDICATION

REACTIONS (1)
  - KNEE OPERATION [None]
